FAERS Safety Report 16433711 (Version 1)
Quarter: 2019Q2

REPORT INFORMATION
  Report Type: Report from Study
  Country: IN (occurrence: IN)
  Receive Date: 20190614
  Receipt Date: 20190614
  Transmission Date: 20190711
  Serious: Yes (Death)
  Sender: FDA-Public Use
  Company Number: IN-PFIZER INC-2019254617

PATIENT

DRUGS (1)
  1. DACOMITINIB [Suspect]
     Active Substance: DACOMITINIB

REACTIONS (1)
  - Death [Fatal]
